FAERS Safety Report 9620203 (Version 1)
Quarter: 2013Q4

REPORT INFORMATION
  Report Type: Report from Study
  Country: AR (occurrence: AR)
  Receive Date: 20131014
  Receipt Date: 20131014
  Transmission Date: 20140711
  Serious: Yes (Other)
  Sender: FDA-Public Use
  Company Number: PHHY2013AR114940

PATIENT
  Age: 61 Year
  Sex: Female

DRUGS (2)
  1. DIOVAN D [Suspect]
     Indication: HYPERTENSION
     Dosage: 0.5 DF (320/25 MG)
     Route: 048
  2. DIOVAN [Suspect]
     Indication: HYPERTENSION
     Dosage: 0.5 DF (160 MG), DAILY
     Route: 048

REACTIONS (3)
  - Bundle branch block left [Recovering/Resolving]
  - Emotional disorder [Unknown]
  - Wrong technique in drug usage process [Unknown]
